FAERS Safety Report 21759137 (Version 1)
Quarter: 2022Q4

REPORT INFORMATION
  Report Type: Spontaneous
  Country: US (occurrence: US)
  Receive Date: 20221221
  Receipt Date: 20221221
  Transmission Date: 20230112
  Serious: No
  Sender: FDA-Public Use
  Company Number: US-ASCENDIS PHARMA-2022US001046

PATIENT

DRUGS (1)
  1. SKYTROFA [Suspect]
     Active Substance: LONAPEGSOMATROPIN-TCGD
     Indication: Thymus enlargement
     Dosage: 11 MILLIGRAM, WEEKLY
     Route: 058
     Dates: start: 202208

REACTIONS (2)
  - Device malfunction [Unknown]
  - Off label use [Unknown]
